FAERS Safety Report 25525816 (Version 1)
Quarter: 2025Q3

REPORT INFORMATION
  Report Type: Report from Study
  Country: US (occurrence: US)
  Receive Date: 20250707
  Receipt Date: 20250707
  Transmission Date: 20251021
  Serious: Yes (Other)
  Sender: CHIESI
  Company Number: US-CHIESI-2025CHF04564

PATIENT
  Sex: Female
  Weight: 44.901 kg

DRUGS (1)
  1. BIRCH BARK\HERBALS [Suspect]
     Active Substance: BIRCH BARK\HERBALS
     Indication: Epidermolysis bullosa
     Route: 061
     Dates: start: 20250403, end: 202506

REACTIONS (5)
  - Wound infection staphylococcal [Recovering/Resolving]
  - Abdominal wall wound [Recovering/Resolving]
  - Wound complication [Recovering/Resolving]
  - Fatigue [Recovering/Resolving]
  - Wound [Recovering/Resolving]

NARRATIVE: CASE EVENT DATE: 20250101
